FAERS Safety Report 23740271 (Version 2)
Quarter: 2024Q2

REPORT INFORMATION
  Report Type: Report from Study
  Country: CA (occurrence: CA)
  Receive Date: 20240414
  Receipt Date: 20240518
  Transmission Date: 20240716
  Serious: Yes (Death)
  Sender: FDA-Public Use
  Company Number: CA-ABBVIE-5718978

PATIENT
  Sex: Male

DRUGS (1)
  1. SKYRIZI [Suspect]
     Active Substance: RISANKIZUMAB-RZAA
     Indication: Psoriasis
     Dosage: FORM STRENGTH: 150 MILLIGRAM?FREQUENCY TEXT: WEEK0, 4, AND EVERY 12 WEEKS THEREAFTER
     Route: 058

REACTIONS (1)
  - Death [Fatal]
